FAERS Safety Report 9079176 (Version 1)
Quarter: 2013Q1

REPORT INFORMATION
  Report Type: Report from Study
  Country: US (occurrence: US)
  Receive Date: 20130130
  Receipt Date: 20130130
  Transmission Date: 20140127
  Serious: No
  Sender: FDA-Public Use
  Company Number: US-ABBOTT-12P-163-0950409-00

PATIENT
  Age: 66 Year
  Sex: Female

DRUGS (14)
  1. HUMIRA 40 MG/0.8 ML PEN [Suspect]
     Indication: RHEUMATOID ARTHRITIS
     Route: 050
     Dates: start: 20120524, end: 20120620
  2. FISH OIL [Concomitant]
     Indication: PRODUCT USED FOR UNKNOWN INDICATION
     Dosage: EVERY DAY AS NEEDED
     Route: 048
  3. LIPITOR [Concomitant]
     Indication: BLOOD CHOLESTEROL INCREASED
     Dosage: 20MG EVERY DAY
     Route: 048
  4. HYDROCODONE [Concomitant]
     Indication: PAIN
     Dosage: 7.5/500MG AS NEEDED
  5. ARAVA [Concomitant]
     Indication: RHEUMATOID ARTHRITIS
     Dosage: 20MG EVERY DAY
     Route: 048
  6. CARDIZEM [Concomitant]
     Indication: HYPERTENSION
     Dosage: 360MG EVERY DAY
     Route: 048
  7. PREDNISONE [Concomitant]
     Indication: RHEUMATOID ARTHRITIS
     Dosage: 10 MG EVERY DAY
     Route: 048
  8. CELEBREX [Concomitant]
     Indication: PRODUCT USED FOR UNKNOWN INDICATION
     Dosage: 200MG EVERY DAY
  9. BENICAR [Concomitant]
     Indication: PRODUCT USED FOR UNKNOWN INDICATION
     Dosage: 40MG EVERY DAY
     Route: 048
  10. VITAMIN D [Concomitant]
     Indication: PRODUCT USED FOR UNKNOWN INDICATION
     Dosage: EVERY MONTH
     Route: 048
  11. FOLIC ACID [Concomitant]
     Indication: PRODUCT USED FOR UNKNOWN INDICATION
     Dosage: 1MG EVERY DAY
     Route: 048
  12. LEVOTHYROXIN [Concomitant]
     Indication: PRODUCT USED FOR UNKNOWN INDICATION
     Dosage: 125MCG DAILY
     Route: 048
  13. XOPENEX [Concomitant]
     Indication: PRODUCT USED FOR UNKNOWN INDICATION
     Route: 055
  14. SYNTHROID [Concomitant]
     Indication: HYPOTHYROIDISM
     Route: 048

REACTIONS (7)
  - Drug dose omission [Not Recovered/Not Resolved]
  - Injection site pain [Recovering/Resolving]
  - Herpes zoster [Recovering/Resolving]
  - Chest pain [Recovering/Resolving]
  - Pain [Unknown]
  - Back pain [Unknown]
  - Gait disturbance [Unknown]
